FAERS Safety Report 7724286-0 (Version None)
Quarter: 2011Q3

REPORT INFORMATION
  Report Type: 
  Country: None (occurrence: None)
  Receive Date: 20110901
  Receipt Date: 20110822
  Transmission Date: 20111222
  Serious: Yes (Hospitalization, Other)
  Sender: FDA-Public Use
  Company Number: US-BAXTER-2011BH026709

PATIENT
  Sex: Male

DRUGS (2)
  1. DIANEAL [Suspect]
     Indication: PERITONEAL DIALYSIS
     Route: 033
     Dates: start: 20100601
  2. PLAVIX [Suspect]
     Indication: COAGULOPATHY
     Route: 058
     Dates: end: 20110819

REACTIONS (9)
  - CONFUSIONAL STATE [None]
  - LIGAMENT SPRAIN [None]
  - HAEMORRHAGE [None]
  - SUBDURAL HAEMATOMA [None]
  - TREMOR [None]
  - SPEECH DISORDER [None]
  - ROAD TRAFFIC ACCIDENT [None]
  - NERVOUSNESS [None]
  - EPISTAXIS [None]
